FAERS Safety Report 7744048-8 (Version None)
Quarter: 2011Q3

REPORT INFORMATION
  Report Type: 
  Country: None (occurrence: None)
  Receive Date: 20110912
  Receipt Date: 20110908
  Transmission Date: 20111222
  Serious: Yes (Death, Life-Threatening, Hospitalization)
  Sender: FDA-Public Use
  Company Number: DE-BRISTOL-MYERS SQUIBB COMPANY-15195480

PATIENT
  Age: 67 Year
  Sex: Female

DRUGS (30)
  1. MORPHINE [Concomitant]
     Indication: PAIN
     Dates: start: 20100614
  2. METAMIZOLE [Concomitant]
     Dates: start: 20100613
  3. PEMETREXED DISODIUM [Suspect]
     Indication: NON-SMALL CELL LUNG CANCER
     Dosage: LAST INF ON 1JUL10.
     Route: 042
     Dates: start: 20100610
  4. VITAMIN B-12 [Concomitant]
     Dates: start: 20100610, end: 20100610
  5. LEVOTHYROXINE SODIUM [Concomitant]
     Dates: start: 19880101
  6. ALUMINUM HYDROXIDE GEL [Concomitant]
  7. FOLIC ACID [Concomitant]
     Dates: start: 20100601, end: 20100707
  8. AMITRIPTYLINE HCL [Concomitant]
     Dates: start: 20100527
  9. CAPROS [Concomitant]
     Dates: start: 20100616
  10. LORAZEPAM [Concomitant]
     Indication: PAIN
     Dates: start: 20100613
  11. LAXOBERAL [Concomitant]
     Dates: start: 20100629
  12. POTASSIUM [Concomitant]
  13. CISPLATIN [Suspect]
     Indication: NON-SMALL CELL LUNG CANCER
     Dosage: LAST INF ON 1JUL10.
     Route: 042
     Dates: start: 20100610
  14. METOCLOPRAMIDE HYDROCHLORIDE [Concomitant]
     Indication: NAUSEA
     Dates: start: 20100611
  15. BISOPROLOL FUMARATE [Concomitant]
     Dates: start: 20100512
  16. MOVIPREP [Concomitant]
     Dates: start: 20100521
  17. ASPIRIN [Concomitant]
     Dates: start: 20100602
  18. TRAMADOL HYDROCHLORIDE [Concomitant]
     Dosage: DROPS
     Dates: start: 20100611
  19. CIPROFLOXACIN [Concomitant]
     Dates: start: 20100610
  20. MAGNESIUM HYDROXIDE [Concomitant]
  21. ESTRADIOL [Concomitant]
     Dates: start: 19820101
  22. PANTOPRAZOLE [Concomitant]
     Dates: start: 20100611
  23. TEPILTA [Concomitant]
     Dates: start: 20100701, end: 20100701
  24. FRESUBIN [Concomitant]
     Dates: start: 20100630
  25. BEVACIZUMAB [Suspect]
     Indication: NON-SMALL CELL LUNG CANCER
     Dosage: LAST INF ON 1JUL10.
     Route: 042
     Dates: start: 20100610
  26. DEXAMETHASONE [Concomitant]
     Dates: start: 20100630, end: 20100702
  27. NOVALGIN [Concomitant]
     Dates: start: 20100518
  28. ONDANSETRON [Concomitant]
     Dates: start: 20100610
  29. KALINOR [Concomitant]
     Dates: start: 20100613
  30. HYDROMORPHONE HCL [Concomitant]
     Dates: start: 20100614

REACTIONS (3)
  - PNEUMONIA ASPIRATION [None]
  - COMA [None]
  - DEHYDRATION [None]
